FAERS Safety Report 22399035 (Version 1)
Quarter: 2023Q2

REPORT INFORMATION
  Report Type: Spontaneous
  Country: US (occurrence: US)
  Receive Date: 20230602
  Receipt Date: 20230602
  Transmission Date: 20230722
  Serious: Yes (Hospitalization)
  Sender: FDA-Public Use
  Company Number: US-MYLANLABS-2023M1056266

PATIENT
  Age: 55 Year
  Sex: Male

DRUGS (1)
  1. THIAMINE [Suspect]
     Active Substance: THIAMINE
     Indication: Marchiafava-Bignami disease
     Dosage: UNK
     Route: 065

REACTIONS (1)
  - Drug ineffective [Unknown]
